FAERS Safety Report 7056378-6 (Version None)
Quarter: 2010Q4

REPORT INFORMATION
  Report Type: 
  Country: None (occurrence: None)
  Receive Date: 20101021
  Receipt Date: 20100921
  Transmission Date: 20110411
  Serious: Yes (Other)
  Sender: FDA-Public Use
  Company Number: PHHY2010BR66334

PATIENT
  Age: 65 Year
  Sex: Male

DRUGS (9)
  1. DIOVAN [Suspect]
     Dosage: 160 MG, QD
     Dates: start: 20090311
  2. DIGOXIN [Concomitant]
     Dosage: 0.25 MG, QD
     Dates: start: 20090311
  3. CARVEDILOL [Concomitant]
     Dosage: 12.5 MG, BID
  4. FUROSEMIDE [Concomitant]
     Dosage: 40 MG, BID
     Dates: start: 20090311
  5. FUROSEMIDE [Concomitant]
     Dosage: 40 MG, QD
  6. SPIRONOLACTONE [Concomitant]
     Dosage: 25 MG, QD
     Dates: start: 20090311
  7. ASPIRIN [Concomitant]
  8. EXFORGE [Suspect]
     Dosage: 160/5 MG ONCE DAILY
  9. SIMVASTATIN [Concomitant]
     Dosage: 40 MG, QD

REACTIONS (11)
  - AORTIC VALVE INCOMPETENCE [None]
  - BLOOD PRESSURE DIASTOLIC DECREASED [None]
  - HEART VALVE REPLACEMENT [None]
  - HYPERTENSION [None]
  - LEFT VENTRICULAR DYSFUNCTION [None]
  - LEFT VENTRICULAR HYPERTROPHY [None]
  - MITRAL VALVE DISEASE [None]
  - MITRAL VALVE INCOMPETENCE [None]
  - MYOCARDIAL ISCHAEMIA [None]
  - TRICUSPID VALVE INCOMPETENCE [None]
  - VENTRICULAR HYPOKINESIA [None]
